FAERS Safety Report 7274311-9 (Version None)
Quarter: 2011Q1

REPORT INFORMATION
  Report Type: 
  Country: None (occurrence: None)
  Receive Date: 20110131
  Receipt Date: 20110131
  Transmission Date: 20110831
  Serious: Yes (Other)
  Sender: FDA-Public Use
  Company Number: None

PATIENT
  Age: 30 Year
  Sex: Female
  Weight: 54.4316 kg

DRUGS (2)
  1. DROSPIRENONE/ETHINYL ESTRADIOL [Suspect]
     Indication: CONTRACEPTION
     Dosage: 1 TAB PO QD
     Route: 048
     Dates: start: 20101012, end: 20101220
  2. DROSPIRENONE/ETHINYL ESTRADIOL [Suspect]
     Indication: ACNE
     Dosage: 1 TAB PO QD
     Route: 048
     Dates: start: 20101012, end: 20101220

REACTIONS (2)
  - ACNE [None]
  - CONDITION AGGRAVATED [None]
